FAERS Safety Report 21662028 (Version 1)
Quarter: 2022Q4

REPORT INFORMATION
  Report Type: Spontaneous
  Country: IT (occurrence: IT)
  Receive Date: 20221130
  Receipt Date: 20221130
  Transmission Date: 20230113
  Serious: Yes (Other)
  Sender: FDA-Public Use
  Company Number: IT-BAYER-2022P024198

PATIENT
  Age: 68 Year
  Sex: Male

DRUGS (1)
  1. EYLEA [Suspect]
     Active Substance: AFLIBERCEPT
     Indication: Product used for unknown indication
     Dosage: UNK; SOLUTION FOR INJECTION

REACTIONS (4)
  - Retinal exudates [Unknown]
  - Condition aggravated [Unknown]
  - Drug ineffective [Unknown]
  - Visual impairment [Unknown]
